FAERS Safety Report 15425043 (Version 1)
Quarter: 2018Q4

REPORT INFORMATION
  Report Type: Spontaneous
  Country: US (occurrence: US)
  Receive Date: 20180925
  Receipt Date: 20180925
  Transmission Date: 20190204
  Serious: No
  Sender: FDA-Public Use
  Company Number: US-THERAPEUTICSMD-2018TMD00065

PATIENT
  Sex: Female
  Weight: 54.42 kg

DRUGS (4)
  1. IMVEXXY [Suspect]
     Active Substance: ESTRADIOL
     Indication: DYSPAREUNIA
     Dosage: 10 ?G, UNK AT BEDTIME
     Dates: start: 20180719, end: 2018
  2. TEMOVATE [Concomitant]
     Active Substance: CLOBETASOL PROPIONATE
  3. IMVEXXY [Suspect]
     Active Substance: ESTRADIOL
     Indication: ATROPHIC VULVOVAGINITIS
  4. ALENDRONATE [Concomitant]
     Active Substance: ALENDRONATE SODIUM

REACTIONS (1)
  - Discharge [Recovered/Resolved]

NARRATIVE: CASE EVENT DATE: 2018
